FAERS Safety Report 12601580 (Version 1)
Quarter: 2016Q3

REPORT INFORMATION
  Report Type: Spontaneous
  Country: US (occurrence: None)
  Receive Date: 20160727
  Receipt Date: 20160727
  Transmission Date: 20161109
  Serious: Yes (Life-Threatening)
  Sender: FDA-Public Use
  Company Number: None

PATIENT
  Age: 32 Year
  Sex: Female
  Weight: 57.61 kg

DRUGS (1)
  1. BUPROPION HCL [Suspect]
     Active Substance: BUPROPION HYDROCHLORIDE
     Indication: DEPRESSION
     Dosage: 1 TABLET(S) IN THE MORNING TAKEN BY MOUTH
     Route: 048

REACTIONS (1)
  - Seizure [None]

NARRATIVE: CASE EVENT DATE: 20140214
